FAERS Safety Report 13296740 (Version 8)
Quarter: 2017Q3

REPORT INFORMATION
  Report Type: Report from Study
  Country: US (occurrence: US)
  Receive Date: 20170306
  Receipt Date: 20170808
  Transmission Date: 20171127
  Serious: Yes (Life-Threatening, Hospitalization)
  Sender: FDA-Public Use
  Company Number: US-ROCHE-1711661

PATIENT
  Age: 33 Year
  Sex: Female
  Weight: 54.03 kg

DRUGS (60)
  1. RITUXIMAB. [Suspect]
     Active Substance: RITUXIMAB
     Dosage: SINGAL DOSE
     Route: 042
     Dates: start: 20160119, end: 20160119
  2. PREDNISONE. [Suspect]
     Active Substance: PREDNISONE
     Route: 048
     Dates: start: 20160224, end: 20160229
  3. ASPIRIN. [Concomitant]
     Active Substance: ASPIRIN
     Indication: ATRIAL FIBRILLATION
     Route: 048
     Dates: start: 20160217
  4. METOLAZONE. [Concomitant]
     Active Substance: METOLAZONE
  5. LASIX [Concomitant]
     Active Substance: FUROSEMIDE
     Route: 048
     Dates: start: 20161022
  6. RENVELA [Concomitant]
     Active Substance: SEVELAMER CARBONATE
  7. CLARITIN (UNITED STATES) [Concomitant]
     Indication: PROPHYLAXIS
     Route: 048
     Dates: start: 20170104, end: 20170104
  8. PREDNISONE. [Suspect]
     Active Substance: PREDNISONE
     Indication: SYSTEMIC LUPUS ERYTHEMATOSUS
     Route: 048
     Dates: start: 201510, end: 20160104
  9. METHYLPREDNISOLONE. [Suspect]
     Active Substance: METHYLPREDNISOLONE
     Route: 042
     Dates: start: 20161212, end: 20161212
  10. CYCLOPHOSPHAMIDE. [Suspect]
     Active Substance: CYCLOPHOSPHAMIDE
     Dosage: SINGAL
     Route: 042
     Dates: start: 20161209, end: 20161209
  11. LOSARTAN. [Concomitant]
     Active Substance: LOSARTAN
     Route: 048
     Dates: start: 201507
  12. ASA [Concomitant]
     Active Substance: ASPIRIN
  13. PREDNISONE. [Suspect]
     Active Substance: PREDNISONE
     Route: 048
     Dates: start: 20160322
  14. METHYLPREDNISOLONE. [Suspect]
     Active Substance: METHYLPREDNISOLONE
     Route: 042
     Dates: start: 20161211, end: 20161211
  15. CYCLOPHOSPHAMIDE. [Suspect]
     Active Substance: CYCLOPHOSPHAMIDE
     Dosage: SINGAL
     Route: 042
     Dates: start: 20161003, end: 20161003
  16. METOPROLOL. [Concomitant]
     Active Substance: METOPROLOL
     Dosage: Q AM
     Route: 048
     Dates: start: 20160217
  17. LOVENOX [Concomitant]
     Active Substance: ENOXAPARIN SODIUM
     Route: 058
     Dates: start: 20150325, end: 20160330
  18. COUMADIN [Concomitant]
     Active Substance: WARFARIN SODIUM
  19. HEPARIN [Concomitant]
     Active Substance: HEPARIN SODIUM
     Indication: CEREBROVASCULAR ACCIDENT
     Dosage: 216 ML/HR
     Route: 042
     Dates: start: 20151229, end: 20160102
  20. DAPSONE. [Concomitant]
     Active Substance: DAPSONE
  21. ERGOCALCIFEROL. [Concomitant]
     Active Substance: ERGOCALCIFEROL
     Route: 048
     Dates: start: 20151008
  22. ECULIZUMAB [Concomitant]
     Active Substance: ECULIZUMAB
     Route: 042
     Dates: start: 20161228, end: 20161228
  23. ACETAMINOPHEN. [Concomitant]
     Active Substance: ACETAMINOPHEN
     Route: 048
     Dates: start: 20170104
  24. CLARITIN (UNITED STATES) [Concomitant]
     Route: 048
     Dates: start: 20170111
  25. MYCOPHENOLATE MOFETIL. [Suspect]
     Active Substance: MYCOPHENOLATE MOFETIL
     Indication: SYSTEMIC LUPUS ERYTHEMATOSUS
     Route: 048
     Dates: start: 201412, end: 20160104
  26. PREDNISONE. [Suspect]
     Active Substance: PREDNISONE
     Route: 048
  27. PREDNISONE. [Suspect]
     Active Substance: PREDNISONE
     Route: 048
     Dates: start: 20170613
  28. PREDNISONE. [Suspect]
     Active Substance: PREDNISONE
     Route: 048
     Dates: start: 20160119, end: 20160201
  29. PREDNISONE. [Suspect]
     Active Substance: PREDNISONE
     Route: 048
     Dates: start: 20160315, end: 20160321
  30. METHYLPREDNISOLONE. [Suspect]
     Active Substance: METHYLPREDNISOLONE
     Indication: SYSTEMIC LUPUS ERYTHEMATOSUS
     Route: 042
     Dates: start: 20160105, end: 20160105
  31. CYCLOPHOSPHAMIDE. [Suspect]
     Active Substance: CYCLOPHOSPHAMIDE
     Dosage: SINGAL
     Route: 042
     Dates: start: 20161125, end: 20161125
  32. METOPROLOL. [Concomitant]
     Active Substance: METOPROLOL
     Indication: ATRIAL FIBRILLATION
     Route: 048
     Dates: start: 2012, end: 20160217
  33. SPIRONOLACTONE. [Concomitant]
     Active Substance: SPIRONOLACTONE
     Route: 048
     Dates: start: 201502
  34. ECULIZUMAB [Concomitant]
     Active Substance: ECULIZUMAB
     Route: 042
     Dates: start: 20161213, end: 20161213
  35. ECULIZUMAB [Concomitant]
     Active Substance: ECULIZUMAB
     Route: 042
     Dates: start: 20170104, end: 20170104
  36. ECULIZUMAB [Concomitant]
     Active Substance: ECULIZUMAB
     Route: 042
     Dates: start: 20170111
  37. DAPSONE. [Concomitant]
     Active Substance: DAPSONE
     Indication: PROPHYLAXIS
     Route: 048
     Dates: start: 20160105
  38. PREDNISONE. [Suspect]
     Active Substance: PREDNISONE
     Route: 048
     Dates: start: 20160105, end: 20160118
  39. PREDNISONE. [Suspect]
     Active Substance: PREDNISONE
     Route: 048
     Dates: start: 20160301, end: 20160307
  40. CYCLOPHOSPHAMIDE. [Suspect]
     Active Substance: CYCLOPHOSPHAMIDE
     Dosage: SINGAL
     Route: 042
     Dates: start: 20160119, end: 20160119
  41. METOPROLOL. [Concomitant]
     Active Substance: METOPROLOL
     Dosage: QPM
     Route: 048
     Dates: start: 20160217
  42. LIPITOR [Concomitant]
     Active Substance: ATORVASTATIN CALCIUM
  43. METOPROLOL. [Concomitant]
     Active Substance: METOPROLOL
  44. RITUXIMAB. [Suspect]
     Active Substance: RITUXIMAB
     Indication: SYSTEMIC LUPUS ERYTHEMATOSUS
     Dosage: SINGLE DOSE
     Route: 042
     Dates: start: 20160105, end: 20160105
  45. PREDNISONE. [Suspect]
     Active Substance: PREDNISONE
     Route: 048
     Dates: start: 20170521
  46. PREDNISONE. [Suspect]
     Active Substance: PREDNISONE
     Route: 048
     Dates: start: 20160202, end: 20160215
  47. PREDNISONE. [Suspect]
     Active Substance: PREDNISONE
     Route: 048
     Dates: start: 20160308, end: 20160414
  48. METHYLPREDNISOLONE. [Suspect]
     Active Substance: METHYLPREDNISOLONE
     Route: 042
     Dates: start: 20160119, end: 20160119
  49. ECULIZUMAB [Concomitant]
     Active Substance: ECULIZUMAB
     Route: 042
     Dates: start: 20161221, end: 20161221
  50. BENADRYL [Concomitant]
     Active Substance: DIPHENHYDRAMINE HYDROCHLORIDE
     Indication: PROPHYLAXIS
     Route: 048
     Dates: start: 20161228
  51. ACETAMINOPHEN. [Concomitant]
     Active Substance: ACETAMINOPHEN
     Indication: PROPHYLAXIS
     Route: 048
     Dates: start: 20161228, end: 20161228
  52. CYCLOPHOSPHAMIDE. [Suspect]
     Active Substance: CYCLOPHOSPHAMIDE
     Indication: SYSTEMIC LUPUS ERYTHEMATOSUS
     Dosage: SINGAL
     Route: 042
     Dates: start: 20160105, end: 20160105
  53. CYCLOPHOSPHAMIDE. [Suspect]
     Active Substance: CYCLOPHOSPHAMIDE
     Dosage: SINGAL
     Route: 042
     Dates: start: 20161018, end: 20161018
  54. PLAQUENIL [Concomitant]
     Active Substance: HYDROXYCHLOROQUINE SULFATE
     Route: 065
  55. INFLUENZA VACCINE [Concomitant]
     Active Substance: INFLUENZA VIRUS VACCINE
     Route: 030
     Dates: start: 20161213, end: 20161213
  56. PREDNISONE. [Suspect]
     Active Substance: PREDNISONE
     Route: 048
     Dates: start: 20160216, end: 20160223
  57. CYCLOPHOSPHAMIDE. [Suspect]
     Active Substance: CYCLOPHOSPHAMIDE
     Dosage: SINGAL
     Route: 042
     Dates: start: 20161101, end: 20161101
  58. HYDROXYCHLOROQUINE [Concomitant]
     Active Substance: HYDROXYCHLOROQUINE
     Indication: SYSTEMIC LUPUS ERYTHEMATOSUS
     Route: 048
     Dates: start: 2013
  59. LOVENOX [Concomitant]
     Active Substance: ENOXAPARIN SODIUM
     Route: 058
     Dates: start: 20151225, end: 20151227
  60. WARFARIN [Concomitant]
     Active Substance: WARFARIN
     Route: 048
     Dates: start: 2012, end: 20151223

REACTIONS (7)
  - Retroperitoneal haematoma [Recovered/Resolved]
  - Lupus nephritis [Recovered/Resolved]
  - Renal failure [Recovered/Resolved]
  - Perirenal haematoma [Recovered/Resolved]
  - Pneumonia [Recovered/Resolved]
  - Systemic lupus erythematosus [Recovered/Resolved]
  - Lupus nephritis [Recovered/Resolved]

NARRATIVE: CASE EVENT DATE: 20151228
